FAERS Safety Report 17075209 (Version 1)
Quarter: 2019Q4

REPORT INFORMATION
  Report Type: Spontaneous
  Country: US (occurrence: US)
  Receive Date: 20191125
  Receipt Date: 20191125
  Transmission Date: 20200122
  Serious: Yes (Life-Threatening, Hospitalization, Disabling, Other)
  Sender: FDA-Public Use
  Company Number: None

PATIENT
  Age: 64 Year
  Sex: Male
  Weight: 93.15 kg

DRUGS (3)
  1. BRILINTA [Suspect]
     Active Substance: TICAGRELOR
     Indication: CORONARY ARTERIAL STENT INSERTION
     Route: 048
     Dates: start: 20190814, end: 20190820
  2. ASPIRIN 81MG DAILY [Concomitant]
     Active Substance: ASPIRIN
     Dates: start: 20190813, end: 20190820
  3. SIMVASTATIN 40MG DAILY [Concomitant]
     Dates: start: 20190801

REACTIONS (3)
  - Vascular stent thrombosis [None]
  - Cerebral artery embolism [None]
  - Treatment failure [None]

NARRATIVE: CASE EVENT DATE: 20190820
